FAERS Safety Report 5127876-7 (Version None)
Quarter: 2006Q4

REPORT INFORMATION
  Report Type: 
  Country: None (occurrence: None)
  Receive Date: 20061016
  Receipt Date: 20061006
  Transmission Date: 20070319
  Serious: Yes (Hospitalization)
  Sender: FDA-Public Use
  Company Number: US-AMGEN-US196116

PATIENT
  Sex: Female

DRUGS (11)
  1. ARANESP [Suspect]
     Indication: ANAEMIA
     Dates: start: 20060701
  2. SPIRIVA [Concomitant]
  3. ADVAIR DISKUS 100/50 [Concomitant]
  4. ALBUTEROL [Concomitant]
  5. ZOLOFT [Concomitant]
  6. LASIX [Concomitant]
  7. IRON [Concomitant]
  8. OXYBUTYNIN [Concomitant]
  9. FOLIC ACID [Concomitant]
  10. MULTIVITAMIN [Concomitant]
  11. CALCIUM GLUCONATE [Concomitant]

REACTIONS (2)
  - OEDEMA PERIPHERAL [None]
  - PYREXIA [None]
